FAERS Safety Report 19737704 (Version 3)
Quarter: 2024Q3

REPORT INFORMATION
  Report Type: Spontaneous
  Country: US (occurrence: US)
  Receive Date: 20210823
  Receipt Date: 20240802
  Transmission Date: 20241016
  Serious: No
  Sender: ARBOR
  Company Number: US-ARBOR PHARMACEUTICALS, LLC-US-2021ARB000606

PATIENT
  Sex: Female

DRUGS (9)
  1. TRIPTODUR [Suspect]
     Active Substance: TRIPTORELIN
     Indication: Product used for unknown indication
     Dosage: UNK, SINGLE
     Route: 030
     Dates: start: 20210104, end: 20210104
  2. TRIPTODUR [Suspect]
     Active Substance: TRIPTORELIN
     Dosage: UNK, SINGLE
     Route: 030
     Dates: start: 20210616, end: 20210616
  3. TRIPTODUR [Suspect]
     Active Substance: TRIPTORELIN
     Dosage: UNK, SINGLE
     Route: 030
     Dates: start: 20220614, end: 20220614
  4. TRIPTODUR [Suspect]
     Active Substance: TRIPTORELIN
     Dosage: UNK, SINGLE (DOSE NOT ADMINISTERED)
     Route: 030
  5. TRIPTODUR [Suspect]
     Active Substance: TRIPTORELIN
     Dosage: UNK, SINGLE
     Route: 030
     Dates: start: 20221216, end: 20221216
  6. TRIPTODUR [Suspect]
     Active Substance: TRIPTORELIN
     Dosage: UNK, SINGLE
     Route: 030
     Dates: start: 20230524, end: 20230524
  7. TRIPTODUR [Suspect]
     Active Substance: TRIPTORELIN
     Dosage: UNK, SINGLE
     Route: 030
  8. TRIPTODUR [Suspect]
     Active Substance: TRIPTORELIN
  9. TRIPTODUR [Suspect]
     Active Substance: TRIPTORELIN

REACTIONS (12)
  - Eczema [Not Recovered/Not Resolved]
  - Pruritus [Not Recovered/Not Resolved]
  - Skin injury [Not Recovered/Not Resolved]
  - Attention-seeking behaviour [Unknown]
  - Feeling hot [Not Recovered/Not Resolved]
  - Chest discomfort [Unknown]
  - Mood swings [Unknown]
  - Crying [Unknown]
  - Mood altered [Unknown]
  - Hot flush [Not Recovered/Not Resolved]
  - Product dose omission issue [Unknown]
  - Syringe issue [Unknown]

NARRATIVE: CASE EVENT DATE: 20210101
